FAERS Safety Report 15785546 (Version 1)
Quarter: 2019Q1

REPORT INFORMATION
  Report Type: Spontaneous
  Country: US (occurrence: US)
  Receive Date: 20190102
  Receipt Date: 20190102
  Transmission Date: 20190417
  Serious: Yes (Life-Threatening, Hospitalization)
  Sender: FDA-Public Use
  Company Number: None

PATIENT
  Age: 63 Year
  Sex: Female
  Weight: 86.4 kg

DRUGS (13)
  1. RITUXAN [Suspect]
     Active Substance: RITUXIMAB
     Indication: RHEUMATOID ARTHRITIS
     Dosage: ?          OTHER FREQUENCY:TWO INFUSIONS;OTHER ROUTE:INFUSION?
     Dates: start: 20161216, end: 20170109
  2. PREDNISONE. [Concomitant]
     Active Substance: PREDNISONE
  3. BENADRYL [Concomitant]
     Active Substance: DIPHENHYDRAMINE HYDROCHLORIDE
  4. VITAMIN D [Concomitant]
     Active Substance: CHOLECALCIFEROL
  5. METOPROLOL. [Concomitant]
     Active Substance: METOPROLOL
  6. BABY ASPIRIN [Concomitant]
     Active Substance: ASPIRIN
  7. LIPITOR [Concomitant]
     Active Substance: ATORVASTATIN CALCIUM
  8. NEXIUM [Concomitant]
     Active Substance: ESOMEPRAZOLE MAGNESIUM
  9. ALENDRONATE [Concomitant]
     Active Substance: ALENDRONATE SODIUM
  10. METFORMIN [Concomitant]
     Active Substance: METFORMIN HYDROCHLORIDE
  11. LYRICA [Concomitant]
     Active Substance: PREGABALIN
  12. ADVIL [Concomitant]
     Active Substance: IBUPROFEN
  13. IRON [Concomitant]
     Active Substance: IRON

REACTIONS (7)
  - Unresponsive to stimuli [None]
  - Pneumonia [None]
  - Urinary tract infection [None]
  - Laryngitis [None]
  - Sepsis [None]
  - Multiple organ dysfunction syndrome [None]
  - Immunodeficiency [None]

NARRATIVE: CASE EVENT DATE: 20170413
